FAERS Safety Report 21884987 (Version 1)
Quarter: 2023Q1

REPORT INFORMATION
  Report Type: Spontaneous
  Country: GB (occurrence: GB)
  Receive Date: 20230119
  Receipt Date: 20230119
  Transmission Date: 20230417
  Serious: Yes (Hospitalization)
  Sender: FDA-Public Use
  Company Number: GB-PFIZER INC-202300023650

PATIENT
  Sex: Female

DRUGS (1)
  1. VARENICLINE TARTRATE [Suspect]
     Active Substance: VARENICLINE TARTRATE
     Indication: Smoking cessation therapy
     Dosage: UNK

REACTIONS (6)
  - Intentional self-injury [Unknown]
  - Depression [Unknown]
  - Anxiety [Unknown]
  - Alcohol abuse [Unknown]
  - Emotional distress [Unknown]
  - Nightmare [Not Recovered/Not Resolved]
